FAERS Safety Report 17621938 (Version 1)
Quarter: 2020Q2

REPORT INFORMATION
  Report Type: Spontaneous
  Country: US (occurrence: US)
  Receive Date: 20200403
  Receipt Date: 20200403
  Transmission Date: 20200713
  Serious: Yes (Death)
  Sender: FDA-Public Use
  Company Number: US-PFIZER INC-2020136169

PATIENT
  Sex: Female

DRUGS (1)
  1. BUPIVACAINE HCL [Suspect]
     Active Substance: BUPIVACAINE HYDROCHLORIDE
     Indication: ANAESTHESIA
     Dosage: UNK (TEST DOSE 5 ML FOLLOWED BY 15 ML)

REACTIONS (4)
  - Seizure [Fatal]
  - Circulatory collapse [Fatal]
  - Hypoxia [Fatal]
  - Incorrect route of product administration [Fatal]
